FAERS Safety Report 12050957 (Version 1)
Quarter: 2016Q1

REPORT INFORMATION
  Report Type: Spontaneous
  Country: US (occurrence: None)
  Receive Date: 20160208
  Receipt Date: 20160208
  Transmission Date: 20160526
  Serious: Yes (Disabling)
  Sender: FDA-Public Use
  Company Number: None

PATIENT
  Age: 52 Year
  Sex: Female
  Weight: 74.84 kg

DRUGS (4)
  1. LEVOFLOXACIN 500MG GENERIC/AURBO [Suspect]
     Active Substance: LEVOFLOXACIN
     Indication: UPPER RESPIRATORY TRACT INFECTION
     Dosage: ONE TEABLET PER DAY
     Route: 048
     Dates: start: 20160126, end: 20160204
  2. ATROVENT [Concomitant]
     Active Substance: IPRATROPIUM BROMIDE
  3. ADVIL [Concomitant]
     Active Substance: IBUPROFEN
  4. PROVENTAL [Concomitant]

REACTIONS (5)
  - Muscle disorder [None]
  - Gait disturbance [None]
  - Arthropathy [None]
  - Arthralgia [None]
  - Joint swelling [None]

NARRATIVE: CASE EVENT DATE: 20160126
